FAERS Safety Report 9658905 (Version 1)
Quarter: 2013Q4

REPORT INFORMATION
  Report Type: Report from Study
  Country: CL (occurrence: CL)
  Receive Date: 20131030
  Receipt Date: 20131030
  Transmission Date: 20140711
  Serious: Yes (Other)
  Sender: FDA-Public Use
  Company Number: CL-ROCHE-1294800

PATIENT
  Age: 41 Year
  Sex: Female

DRUGS (2)
  1. XELODA [Suspect]
     Indication: BREAST CANCER
     Route: 048
     Dates: start: 20130802
  2. HERCEPTIN [Suspect]
     Indication: BREAST CANCER
     Route: 042
     Dates: start: 20130802

REACTIONS (1)
  - Pulmonary mass [Not Recovered/Not Resolved]
